FAERS Safety Report 24622779 (Version 1)
Quarter: 2024Q4

REPORT INFORMATION
  Report Type: Spontaneous
  Country: FR (occurrence: FR)
  Receive Date: 20241115
  Receipt Date: 20241115
  Transmission Date: 20250114
  Serious: Yes (Hospitalization)
  Sender: MERZ
  Company Number: None

PATIENT

DRUGS (1)
  1. XEOMIN [Suspect]
     Active Substance: INCOBOTULINUMTOXINA
     Indication: Piriformis syndrome
     Dosage: 150 INTERNATIONAL UNIT
     Route: 030
     Dates: start: 20240514, end: 20240514

REACTIONS (2)
  - Migraine with aura [Recovered/Resolved]
  - Off label use [Unknown]

NARRATIVE: CASE EVENT DATE: 20240514
